FAERS Safety Report 6003000-3 (Version None)
Quarter: 2008Q4

REPORT INFORMATION
  Report Type: 
  Country: None (occurrence: None)
  Receive Date: 20081212
  Receipt Date: 20081124
  Transmission Date: 20090506
  Serious: No
  Sender: FDA-Public Use
  Company Number: 2008-187387-NL

PATIENT
  Age: 56 Year
  Sex: Female

DRUGS (3)
  1. MIRTAZAPINE [Suspect]
     Dosage: 30 MG QD/ 45 MG QD/ 15 MG QD
     Route: 048
     Dates: start: 20080806, end: 20080806
  2. MIRTAZAPINE [Suspect]
     Dosage: 30 MG QD/ 45 MG QD/ 15 MG QD
     Route: 048
     Dates: start: 20080807, end: 20080807
  3. MIRTAZAPINE [Suspect]
     Dosage: 30 MG QD/ 45 MG QD/ 15 MG QD
     Route: 048
     Dates: start: 20080808

REACTIONS (3)
  - ANXIETY [None]
  - HALLUCINATION, VISUAL [None]
  - TACHYCARDIA [None]
